FAERS Safety Report 7381134-9 (Version None)
Quarter: 2011Q1

REPORT INFORMATION
  Report Type: 
  Country: None (occurrence: None)
  Receive Date: 20110329
  Receipt Date: 20110315
  Transmission Date: 20110831
  Serious: Yes (Other)
  Sender: FDA-Public Use
  Company Number: US-JNJFOC-20110306877

PATIENT
  Sex: Female
  Weight: 71.22 kg

DRUGS (3)
  1. PRISTIQ [Concomitant]
     Indication: ANXIETY
     Route: 048
  2. REMICADE [Suspect]
     Indication: RHEUMATOID ARTHRITIS
     Route: 042
  3. REMICADE [Suspect]
     Dosage: 2ND INFUSION
     Route: 042

REACTIONS (9)
  - HOT FLUSH [None]
  - DYSPNOEA [None]
  - RESPIRATORY TRACT CONGESTION [None]
  - ERYTHEMA [None]
  - INFUSION RELATED REACTION [None]
  - CHEST PAIN [None]
  - THROAT TIGHTNESS [None]
  - PYREXIA [None]
  - MUSCULAR WEAKNESS [None]
